FAERS Safety Report 19487057 (Version 1)
Quarter: 2021Q3

REPORT INFORMATION
  Report Type: Spontaneous
  Country: US (occurrence: US)
  Receive Date: 20210702
  Receipt Date: 20210702
  Transmission Date: 20211014
  Serious: Yes (Other)
  Sender: FDA-Public Use
  Company Number: US-UPSHER-SMITH LABORATORIES, LLC-2021USL00467

PATIENT
  Age: 30 Year
  Sex: Male

DRUGS (4)
  1. TESTOSTERONE. [Suspect]
     Active Substance: TESTOSTERONE
     Indication: GENDER DYSPHORIA
     Dosage: 100 MG, 1X/WEEK
     Route: 030
  2. TESTOSTERONE. [Suspect]
     Active Substance: TESTOSTERONE
     Dosage: 50 MG, 1X/WEEK
     Route: 030
  3. TESTOSTERONE. [Suspect]
     Active Substance: TESTOSTERONE
     Dosage: 50?60 MG, 1X/WEEK
     Route: 030
  4. TESTOSTERONE. [Suspect]
     Active Substance: TESTOSTERONE
     Dosage: 140 MG, 1X/WEEK
     Route: 030

REACTIONS (1)
  - Hidradenitis [Recovering/Resolving]
